FAERS Safety Report 20308052 (Version 1)
Quarter: 2022Q1

REPORT INFORMATION
  Report Type: Report from Study
  Country: PT (occurrence: PT)
  Receive Date: 20220107
  Receipt Date: 20220107
  Transmission Date: 20220423
  Serious: Yes (Hospitalization, Other)
  Sender: FDA-Public Use
  Company Number: PT-AUROBINDO-AUR-APL-2022-000339

PATIENT
  Age: 52 Year
  Sex: Female

DRUGS (1)
  1. PERINDOPRIL [Suspect]
     Active Substance: PERINDOPRIL
     Indication: Hypertension
     Dosage: UNK
     Route: 065

REACTIONS (4)
  - Angioedema [Recovered/Resolved]
  - Salivary hypersecretion [Recovered/Resolved]
  - Dyspnoea [Unknown]
  - Odynophagia [Unknown]
